FAERS Safety Report 8315773-5 (Version None)
Quarter: 2012Q2

REPORT INFORMATION
  Report Type: 
  Country: None (occurrence: None)
  Receive Date: 20120426
  Receipt Date: 20120413
  Transmission Date: 20120825
  Serious: Yes (Hospitalization, Other)
  Sender: FDA-Public Use
  Company Number: GB-MYLANLABS-2012S1007698

PATIENT
  Sex: Female

DRUGS (5)
  1. DOXORUBICIN HCL [Concomitant]
     Indication: CHEMOTHERAPY
  2. IFOSFAMIDE [Concomitant]
     Indication: CHEMOTHERAPY
  3. CLARITHROMYCIN [Suspect]
     Indication: PRODUCT USED FOR UNKNOWN INDICATION
  4. GEMCITABINE [Concomitant]
     Indication: CHEMOTHERAPY
  5. TRABECTEDIN [Suspect]
     Indication: PRODUCT USED FOR UNKNOWN INDICATION
     Route: 042

REACTIONS (6)
  - NAUSEA [None]
  - BLOOD CREATINE PHOSPHOKINASE INCREASED [None]
  - VOMITING [None]
  - NEUTROPENIA [None]
  - RENAL DISORDER [None]
  - LIVER DISORDER [None]
